FAERS Safety Report 20383390 (Version 1)
Quarter: 2022Q1

REPORT INFORMATION
  Report Type: Spontaneous
  Country: IN (occurrence: IN)
  Receive Date: 20220127
  Receipt Date: 20220127
  Transmission Date: 20220424
  Serious: Yes (Death)
  Sender: FDA-Public Use
  Company Number: IN-PFIZER INC-2017491564

PATIENT
  Age: 53 Year
  Sex: Female

DRUGS (4)
  1. SUTENT [Suspect]
     Active Substance: SUNITINIB MALATE
     Indication: Metastatic renal cell carcinoma
     Dosage: 50 MG, 1X/DAY,  WEEKS ON AND 1 WEEK OFF
     Route: 048
     Dates: start: 20161112, end: 2018
  2. SUTENT [Suspect]
     Active Substance: SUNITINIB MALATE
     Dosage: 50MG FOR 2 WEEKS ON AND 1 WEEK OFF
     Route: 048
  3. SUTENT [Suspect]
     Active Substance: SUNITINIB MALATE
     Dosage: 37.5 MG 14 DAYS ON AND 7 DAYS OFF
     Dates: start: 2018, end: 20180601
  4. SUTENT [Suspect]
     Active Substance: SUNITINIB MALATE
     Dosage: 50 MG, 1X/DAY
     Route: 048
     Dates: start: 20161112, end: 20211216

REACTIONS (3)
  - Neoplasm progression [Fatal]
  - Immune system disorder [Fatal]
  - Skin fissures [Unknown]

NARRATIVE: CASE EVENT DATE: 20171101
